FAERS Safety Report 9684364 (Version 1)
Quarter: 2013Q4

REPORT INFORMATION
  Report Type: Report from Study
  Country: BR (occurrence: BR)
  Receive Date: 20131112
  Receipt Date: 20131112
  Transmission Date: 20140711
  Serious: Yes (Other)
  Sender: FDA-Public Use
  Company Number: PHHY2013BR126117

PATIENT
  Age: 59 Year
  Sex: Female
  Weight: 52 kg

DRUGS (10)
  1. XOLAIR [Suspect]
     Indication: ASTHMA
     Dosage: 150 MG, QMO
     Dates: start: 20131105
  2. TRILEPTAL [Suspect]
     Indication: CONVULSION
     Dosage: UNK UKN, BID
  3. SERTRALINE [Suspect]
     Indication: DEPRESSION
     Dosage: 2 DF, DAILY (IN THE MORNING)
  4. SPIRIVA [Suspect]
     Indication: ASTHMA
     Dosage: UNK (20 IN 24 HOURS)
  5. RIVOTRIL [Suspect]
     Indication: INSOMNIA
     Dosage: UNK UKN, QD
  6. SERETIDE [Suspect]
     Indication: ASTHMA
     Dosage: UNK UKN, Q12H
  7. AEROLIN [Suspect]
     Indication: ASTHMA
     Dosage: UNK (2H/3H)
  8. SALBUTAMOL [Suspect]
     Indication: ASTHMA
     Dosage: UNK(2H/3H)
  9. MONTELAIR [Suspect]
     Indication: ASTHMA
     Dosage: UNK UKN, QD (ONCE IN THE MORNING)
  10. INSULIN [Suspect]
     Dosage: UNK

REACTIONS (2)
  - Malaise [Recovering/Resolving]
  - Vision blurred [Recovering/Resolving]
